FAERS Safety Report 13244239 (Version 1)
Quarter: 2017Q1

REPORT INFORMATION
  Report Type: Spontaneous
  Country: US (occurrence: US)
  Receive Date: 20170216
  Receipt Date: 20170216
  Transmission Date: 20170428
  Serious: No
  Sender: FDA-Public Use
  Company Number: US-RELYPSA-RLY2017000333

PATIENT
  Sex: Male

DRUGS (3)
  1. VELTASSA [Suspect]
     Active Substance: PATIROMER
     Indication: PRODUCT USED FOR UNKNOWN INDICATION
     Dosage: 8.4 G, 5 DAYS A WEEK
     Route: 065
  2. VELTASSA [Suspect]
     Active Substance: PATIROMER
     Dosage: 8.4 G, M, W, F
     Route: 065
  3. VELTASSA [Suspect]
     Active Substance: PATIROMER
     Dosage: 8.4 G, MON-FRI
     Route: 065

REACTIONS (2)
  - Blood potassium increased [Unknown]
  - Inappropriate schedule of drug administration [Not Recovered/Not Resolved]
